FAERS Safety Report 17279294 (Version 4)
Quarter: 2020Q2

REPORT INFORMATION
  Report Type: Spontaneous
  Country: US (occurrence: US)
  Receive Date: 20200116
  Receipt Date: 20200403
  Transmission Date: 20200713
  Serious: Yes (Other)
  Sender: FDA-Public Use
  Company Number: US-PFIZER INC-2019378202

PATIENT
  Age: 69 Year

DRUGS (2)
  1. PREMARIN [Suspect]
     Active Substance: ESTROGENS, CONJUGATED
     Dosage: 1 G, CYCLIC (PLACE ONE GRAM VAGINALLY EVERY 7 DAYS)
     Route: 067
  2. PREMARIN [Suspect]
     Active Substance: ESTROGENS, CONJUGATED
     Dosage: 2 G, (1 APPLICATOR FULL 1-2 X WEEK)

REACTIONS (3)
  - Sinusitis [Unknown]
  - Off label use [Unknown]
  - Suicidal ideation [Unknown]
